FAERS Safety Report 7803142-3 (Version None)
Quarter: 2011Q4

REPORT INFORMATION
  Report Type: 
  Country: None (occurrence: None)
  Receive Date: 20111007
  Receipt Date: 20110926
  Transmission Date: 20120403
  Serious: Yes (Hospitalization)
  Sender: FDA-Public Use
  Company Number: US-BAYER-201023236NA

PATIENT
  Age: 18 Year
  Sex: Female
  Weight: 74.376 kg

DRUGS (14)
  1. DROSPIRENONE AND ETHINYL ESTRADIOL [Suspect]
     Indication: MENSTRUAL CYCLE MANAGEMENT
     Route: 048
  2. CHLORASEPTIC [Concomitant]
  3. YAZ [Suspect]
     Indication: MENORRHAGIA
  4. IBUPROFEN (ADVIL) [Concomitant]
  5. YAZ [Suspect]
     Indication: MENSTRUAL CYCLE MANAGEMENT
     Route: 048
  6. YASMIN [Suspect]
     Indication: MENSTRUAL CYCLE MANAGEMENT
     Route: 048
  7. ELIMITE [Concomitant]
     Indication: RASH
  8. YASMIN [Suspect]
     Indication: MENORRHAGIA
  9. DROSPIRENONE AND ETHINYL ESTRADIOL [Suspect]
     Indication: MENORRHAGIA
  10. BENADRYL [Concomitant]
     Indication: RASH
  11. AMOXICILLIN [Concomitant]
     Indication: PHARYNGITIS
  12. ACCUTANE [Concomitant]
     Indication: PRODUCT USED FOR UNKNOWN INDICATION
  13. CLARITIN [Concomitant]
  14. YAZ [Suspect]
     Indication: ACNE

REACTIONS (4)
  - CHOLECYSTECTOMY [None]
  - PAIN [None]
  - CHOLECYSTITIS CHRONIC [None]
  - INJURY [None]
